FAERS Safety Report 5359607-X (Version None)
Quarter: 2007Q2

REPORT INFORMATION
  Report Type: 
  Country: None (occurrence: None)
  Receive Date: 20070615
  Receipt Date: 20070601
  Transmission Date: 20071010
  Serious: Yes (Death)
  Sender: FDA-Public Use
  Company Number: US-SHR-US-2007-013173

PATIENT
  Age: 52 Year
  Sex: Female

DRUGS (39)
  1. MAGNEVIST [Suspect]
     Dosage: 20 ML, 1 DOSE
     Route: 042
     Dates: start: 20000616, end: 20000616
  2. MAGNEVIST [Suspect]
     Dosage: 20 ML, 1 DOSE
     Route: 042
     Dates: start: 20010822, end: 20010822
  3. MAGNEVIST [Suspect]
     Dosage: 20 ML, 1 DOSE
     Route: 042
     Dates: start: 20010829, end: 20010829
  4. MAGNEVIST [Suspect]
     Dosage: 20 ML, 1 DOSE
     Route: 042
     Dates: start: 20020503, end: 20020503
  5. MAGNEVIST [Suspect]
     Dosage: 20 ML, 1 DOSE
     Route: 042
     Dates: start: 20020508, end: 20020508
  6. MAGNEVIST [Suspect]
     Dosage: 60 ML, 1 DOSE
     Route: 042
     Dates: start: 20020530, end: 20020530
  7. ANTI-COAGULATION THERAPY [Concomitant]
  8. TYLENOL [Concomitant]
     Dosage: UNK, AS REQ'D
  9. MYLANTA [Concomitant]
     Dosage: UNK, AS REQ'D
  10. LEVOXYL [Concomitant]
     Dosage: 125 A?G, 1X/DAY
  11. NEPHROCAPS [Concomitant]
     Dosage: 1 CAP(S), 1X/DAY
     Route: 048
  12. NEXIUM [Concomitant]
     Dosage: 40 MG, 2X/DAY
     Route: 048
  13. PAXIL [Concomitant]
     Dosage: 20 MG, 1X/DAY
     Route: 048
  14. TAMOXIFEN CITRATE [Concomitant]
     Dosage: 20 MG, 2X/DAY
     Route: 048
  15. FERROUS SULFATE [Concomitant]
     Dosage: 325 MG, 3X/DAY
     Route: 048
  16. PERCOCET [Concomitant]
     Dosage: 2 TAB(S), Q4H AS REQ'D
  17. FLUCONAZOLE [Concomitant]
     Dosage: 100 MG, 1X/DAY
     Route: 048
     Dates: start: 20010601
  18. OMEPRAZOLE [Concomitant]
     Dosage: 20 MG, 2X/DAY
     Route: 048
  19. CALTRATE + D [Concomitant]
     Dosage: 1 TAB(S), 3X/DAY
     Route: 048
  20. ATARAX [Concomitant]
     Dosage: 50 MG,QID AS REQ'D
     Route: 048
  21. SENNA [Concomitant]
  22. COLACE [Concomitant]
  23. TRAZODONE HCL [Concomitant]
     Dosage: 25 MG, BED T.
     Route: 048
  24. ZOFRAN [Concomitant]
  25. MEGACE [Concomitant]
     Dosage: 400 MG, 2X/DAY
     Route: 048
  26. SYNALAR [Concomitant]
     Dosage: .025 UNK, 2X/DAY
     Route: 061
  27. COUMADIN [Concomitant]
     Dosage: .5 MG, QPM
     Route: 048
  28. FENTANYL [Concomitant]
     Dosage: 125 A?G/H, Q72H
     Route: 062
  29. OXYCODONE HCL [Concomitant]
     Dosage: 10 MG, AS REQ'D
     Route: 048
  30. LACRI-LUBE [Concomitant]
     Dosage: BOTH EYES, 4X/DAY
     Route: 047
  31. DILAUDID [Concomitant]
     Dosage: 2 MG, Q3H
     Route: 048
  32. DILAUDID [Concomitant]
     Dosage: 4 MG, Q3H
     Route: 048
  33. PREMARIN [Concomitant]
     Dosage: .625 UNK, 1X/DAY
  34. FOLIC ACID [Concomitant]
  35. VIOXX [Concomitant]
     Dosage: 12.5 MG, 1X/DAY
     Route: 048
  36. OCTREOTIDE ACETATE [Concomitant]
     Dosage: 50 A?G/H, CONT
     Route: 041
     Dates: start: 20020728
  37. NEURONTIN [Concomitant]
     Dosage: 100 MG, 1X/DAY
     Route: 048
  38. RENAGEL [Concomitant]
     Dosage: 1600 MG, 3X/DAY
     Route: 048
  39. RENAGEL [Concomitant]
     Dosage: 2400 MG, 3X/DAY
     Dates: start: 20010601

REACTIONS (1)
  - NEPHROGENIC FIBROSING DERMOPATHY [None]
